FAERS Safety Report 12662347 (Version 2)
Quarter: 2016Q4

REPORT INFORMATION
  Report Type: Report from Study
  Country: GB (occurrence: GB)
  Receive Date: 20160817
  Receipt Date: 20161017
  Transmission Date: 20170207
  Serious: Yes (Hospitalization)
  Sender: FDA-Public Use
  Company Number: GB-BAXALTA-2016BLT005871

PATIENT
  Sex: Male
  Weight: 110 kg

DRUGS (1)
  1. ONCASPAR [Suspect]
     Active Substance: PEGASPARGASE
     Indication: ACUTE LYMPHOCYTIC LEUKAEMIA
     Dosage: 2325 IU, CYCLE 1, DAY 4
     Route: 042
     Dates: start: 20160712, end: 20160712

REACTIONS (3)
  - Alanine aminotransferase increased [Recovered/Resolved]
  - Device related infection [Recovered/Resolved]
  - Blood bilirubin increased [Recovered/Resolved]

NARRATIVE: CASE EVENT DATE: 20160722
